FAERS Safety Report 10264224 (Version 1)
Quarter: 2014Q2

REPORT INFORMATION
  Report Type: Spontaneous
  Country: US (occurrence: None)
  Receive Date: 20140624
  Receipt Date: 20140624
  Transmission Date: 20141212
  Serious: No
  Sender: FDA-Public Use
  Company Number: None

PATIENT
  Age: 9 Year
  Sex: Female
  Weight: 32.66 kg

DRUGS (1)
  1. KETOCONAZOLE [Suspect]
     Indication: RASH
     Dosage: SHAMPOO 3X WEEK
     Dates: start: 20140616, end: 20140622

REACTIONS (5)
  - Dyspnoea [None]
  - Dizziness [None]
  - Chest pain [None]
  - Rash [None]
  - Angina pectoris [None]
